FAERS Safety Report 7865939-3 (Version None)
Quarter: 2011Q4

REPORT INFORMATION
  Report Type: 
  Country: None (occurrence: None)
  Receive Date: 20111028
  Receipt Date: 20110323
  Transmission Date: 20120403
  Serious: No
  Sender: FDA-Public Use
  Company Number: US-GLAXOSMITHKLINE-A0919545A

PATIENT
  Sex: Male

DRUGS (3)
  1. COMBIVENT [Concomitant]
  2. ADVAIR DISKUS 100/50 [Suspect]
     Indication: ASTHMA
     Dosage: 1PUFF TWICE PER DAY
     Route: 055
  3. ASPIRIN [Concomitant]

REACTIONS (3)
  - NONSPECIFIC REACTION [None]
  - DIZZINESS [None]
  - PRODUCT QUALITY ISSUE [None]
